APPROVED DRUG PRODUCT: FLUOXYMESTERONE
Active Ingredient: FLUOXYMESTERONE
Strength: 10MG
Dosage Form/Route: TABLET;ORAL
Application: A088221 | Product #001
Applicant: VALEANT PHARMACEUTICALS INTERNATIONAL
Approved: May 5, 1983 | RLD: No | RS: No | Type: DISCN